FAERS Safety Report 5276610-9 (Version None)
Quarter: 2007Q1

REPORT INFORMATION
  Report Type: 
  Country: None (occurrence: None)
  Receive Date: 20070327
  Receipt Date: 20070315
  Transmission Date: 20070707
  Serious: Yes (Other)
  Sender: FDA-Public Use
  Company Number: PHBS2007JP04068

PATIENT
  Age: 64 Year
  Sex: Female

DRUGS (8)
  1. DIOVAN [Suspect]
     Indication: HYPERTENSION
     Dosage: 80 MG/DAY
     Route: 048
  2. DIOVAN [Suspect]
     Dosage: 160 MG/DAY
     Route: 048
  3. DIOVAN [Suspect]
     Dosage: 80 MG/DAY
     Route: 048
  4. AMLODIPINE BESYLATE [Concomitant]
     Dosage: 2.5 MG/DAY
     Route: 048
  5. AMLODIPINE BESYLATE [Concomitant]
     Dosage: 5 MG/DAY
     Route: 048
  6. LIPITOR [Concomitant]
     Dosage: 10 MG/DAY
     Route: 048
     Dates: start: 20051130, end: 20060613
  7. MEVALOTIN [Concomitant]
     Dosage: 10 MG/DAY
     Route: 048
     Dates: start: 20060614
  8. ARTIST [Concomitant]
     Route: 048
     Dates: start: 20051130, end: 20060101

REACTIONS (4)
  - HOT FLUSH [None]
  - INSOMNIA [None]
  - PERIPHERAL COLDNESS [None]
  - RAYNAUD'S PHENOMENON [None]
